FAERS Safety Report 7015563-X (Version None)
Quarter: 2010Q3

REPORT INFORMATION
  Report Type: 
  Country: None (occurrence: None)
  Receive Date: 20100923
  Receipt Date: 20100906
  Transmission Date: 20110219
  Serious: Yes (Life-Threatening, Hospitalization)
  Sender: FDA-Public Use
  Company Number: TOR 2010-0064

PATIENT
  Age: 75 Year
  Sex: Female

DRUGS (8)
  1. FARESTON [Suspect]
     Indication: BREAST CANCER STAGE I
     Dosage: 40 MG ORAL
     Route: 048
     Dates: start: 20060620, end: 20100505
  2. LASIX [Concomitant]
  3. LANIRAPID [Concomitant]
  4. SLOW-K [Concomitant]
  5. ARTIST [Concomitant]
  6. ALDACTONE [Concomitant]
  7. HALCION [Concomitant]
  8. WARFARIN SODIUM [Concomitant]

REACTIONS (8)
  - ATRIAL FIBRILLATION [None]
  - BRADYCARDIA [None]
  - DECREASED APPETITE [None]
  - DEHYDRATION [None]
  - HYPOKALAEMIA [None]
  - LOSS OF CONSCIOUSNESS [None]
  - NASOPHARYNGITIS [None]
  - TORSADE DE POINTES [None]
